FAERS Safety Report 18453410 (Version 2)
Quarter: 2020Q4

REPORT INFORMATION
  Report Type: Report from Study
  Country: FR (occurrence: FR)
  Receive Date: 20201102
  Receipt Date: 20201124
  Transmission Date: 20210114
  Serious: Yes (Other)
  Sender: FDA-Public Use
  Company Number: FR-JNJFOC-20200903830

PATIENT
  Age: 75 Year
  Sex: Female
  Weight: 46 kg

DRUGS (8)
  1. UPTRAVI [Suspect]
     Active Substance: SELEXIPAG
     Indication: PULMONARY ARTERIAL HYPERTENSION
     Dosage: 200 UG BID
     Route: 048
     Dates: start: 20200818
  2. UPTRAVI [Suspect]
     Active Substance: SELEXIPAG
     Dosage: START ON 15/SEP/2020: 600 UG BID
     Route: 048
     Dates: start: 20200915
  3. UPTRAVI [Suspect]
     Active Substance: SELEXIPAG
     Dosage: START ON 22/SEP/2020 - 800 UG BID
     Route: 048
     Dates: start: 20200922
  4. UPTRAVI [Suspect]
     Active Substance: SELEXIPAG
     Indication: CONNECTIVE TISSUE DISORDER
     Dosage: 400 UG BID
     Route: 048
     Dates: start: 20200825
  5. UPTRAVI [Suspect]
     Active Substance: SELEXIPAG
     Dosage: 1000 UG, BID
     Route: 048
     Dates: start: 20201013
  6. UPTRAVI [Suspect]
     Active Substance: SELEXIPAG
     Dosage: 1200 UG, BID
     Route: 048
     Dates: start: 20201110
  7. TADALAFIL. [Concomitant]
     Active Substance: TADALAFIL
  8. BOSENTAN. [Concomitant]
     Active Substance: BOSENTAN

REACTIONS (6)
  - Faeces soft [Not Recovered/Not Resolved]
  - Muscle spasms [Recovered/Resolved]
  - Hypersensitivity pneumonitis [Not Recovered/Not Resolved]
  - Vertigo [Not Recovered/Not Resolved]
  - Dyspnoea exertional [Unknown]
  - Muscular weakness [Unknown]

NARRATIVE: CASE EVENT DATE: 20200818
